FAERS Safety Report 8838441 (Version 1)
Quarter: 2012Q4

REPORT INFORMATION
  Report Type: 
  Country: JP (occurrence: TW)
  Receive Date: 20121012
  Receipt Date: 20121012
  Transmission Date: 20130627
  Serious: Yes (Other)
  Sender: FDA-Public Use
  Company Number: TW-BRISTOL-MYERS SQUIBB COMPANY-17028952

PATIENT
  Age: 69 Year

DRUGS (1)
  1. MITOMYCIN-C [Suspect]
     Indication: BLADDER TRANSITIONAL CELL CARCINOMA
     Dosage: inj
     Route: 043

REACTIONS (3)
  - Renal failure acute [Unknown]
  - Anuria [Unknown]
  - Flank pain [Unknown]
